FAERS Safety Report 8771151 (Version 2)
Quarter: 2012Q4

REPORT INFORMATION
  Report Type: Report from Study
  Country: US (occurrence: US)
  Receive Date: 20120906
  Receipt Date: 20121002
  Transmission Date: 20130627
  Serious: Yes (Hospitalization)
  Sender: FDA-Public Use
  Company Number: US-ROCHE-1115983

PATIENT
  Age: 62 Year
  Sex: Female
  Weight: 45.85 kg

DRUGS (2)
  1. XELODA [Suspect]
     Indication: BREAST CANCER METASTATIC
     Route: 048
     Dates: start: 20120805, end: 20120816
  2. TYKERB [Concomitant]
     Indication: BREAST CANCER METASTATIC
     Route: 065

REACTIONS (8)
  - Cheilitis [Recovering/Resolving]
  - Vomiting [Recovering/Resolving]
  - Diarrhoea [Recovering/Resolving]
  - Dysgeusia [Recovering/Resolving]
  - Asthenia [Recovering/Resolving]
  - Irritable bowel syndrome [Recovering/Resolving]
  - Colitis [Recovered/Resolved]
  - Mucosal inflammation [Recovered/Resolved]
